FAERS Safety Report 11284527 (Version 2)
Quarter: 2015Q3

REPORT INFORMATION
  Report Type: Spontaneous
  Country: GB (occurrence: GB)
  Receive Date: 20150720
  Receipt Date: 20150727
  Transmission Date: 20151125
  Serious: Yes (Hospitalization)
  Sender: FDA-Public Use
  Company Number: GB-TEVA-577817ACC

PATIENT
  Age: 67 Year
  Sex: Male
  Weight: 70.7 kg

DRUGS (21)
  1. PREDNISOLONE. [Suspect]
     Active Substance: PREDNISOLONE
     Dosage: ROUTE:IV + PO,DOSAGE FORM:INFUSION + ORALLY; DATE OF LAST DOSE PRIOR TO SAE: 21 MAY 2009
     Route: 048
  2. CYCLOPHOSPHAMIDE. [Suspect]
     Active Substance: CYCLOPHOSPHAMIDE
     Route: 042
  3. MABTHERA [Suspect]
     Active Substance: RITUXIMAB
     Route: 042
  4. DOXORUBICIN [Suspect]
     Active Substance: DOXORUBICIN
     Dosage: ROUTE:IV + PO,DOSAGE FORM:INFUSION + ORALLY; DATE OF LAST DOSE PRIOR TO SAE: 21 MAY 2009
     Route: 042
  5. VINCRISTINE [Suspect]
     Active Substance: VINCRISTINE
     Route: 042
     Dates: start: 20090716, end: 20090827
  6. DOXORUBICIN [Suspect]
     Active Substance: DOXORUBICIN
     Indication: DIFFUSE LARGE B-CELL LYMPHOMA
     Route: 042
     Dates: start: 20090716, end: 20090827
  7. VINCRISTINE [Suspect]
     Active Substance: VINCRISTINE
     Route: 042
  8. MABTHERA [Suspect]
     Active Substance: RITUXIMAB
     Indication: DIFFUSE LARGE B-CELL LYMPHOMA
     Route: 042
     Dates: start: 20090716, end: 20090827
  9. PARACETAMOL [Concomitant]
     Active Substance: ACETAMINOPHEN
     Route: 065
  10. DOXORUBICIN [Suspect]
     Active Substance: DOXORUBICIN
     Route: 042
  11. PREDNISOLONE. [Suspect]
     Active Substance: PREDNISOLONE
     Dosage: FREQUENCY REPORTED AS 3 WEEKLY
     Route: 048
  12. AVASTIN [Suspect]
     Active Substance: BEVACIZUMAB
     Dosage: DOSAGE FORM: INFUSION, LAST DOSE PRIOR TO SAE: 21 MAY 2009.
     Route: 042
  13. ALLOPURINOL. [Concomitant]
     Active Substance: ALLOPURINOL
     Route: 065
  14. METOCLOPRAMIDE. [Concomitant]
     Active Substance: METOCLOPRAMIDE
     Route: 065
  15. PREDNISOLONE. [Suspect]
     Active Substance: PREDNISOLONE
     Indication: DIFFUSE LARGE B-CELL LYMPHOMA
     Route: 048
     Dates: start: 20090716, end: 20090827
  16. MABTHERA [Suspect]
     Active Substance: RITUXIMAB
     Dosage: DOSAGE FORM: INFUSION, DATE OF LAST DOSE PRIOR TO SAE: 21 MAY 2009.
     Route: 042
  17. AVASTIN [Suspect]
     Active Substance: BEVACIZUMAB
     Indication: DIFFUSE LARGE B-CELL LYMPHOMA
     Route: 042
  18. AVASTIN [Suspect]
     Active Substance: BEVACIZUMAB
     Route: 042
     Dates: start: 20090716, end: 20090827
  19. CYCLOPHOSPHAMIDE. [Suspect]
     Active Substance: CYCLOPHOSPHAMIDE
     Route: 042
     Dates: start: 20090716, end: 20090827
  20. VINCRISTINE [Suspect]
     Active Substance: VINCRISTINE
     Indication: DIFFUSE LARGE B-CELL LYMPHOMA
     Dosage: ROUTE:IV + PO,DOSAGE FORM:INFUSION + ORALLY; DATE OF LAST DOSE PRIOR TO SAE: 21 MAY 2009
     Route: 042
  21. CYCLOPHOSPHAMIDE. [Suspect]
     Active Substance: CYCLOPHOSPHAMIDE
     Indication: DIFFUSE LARGE B-CELL LYMPHOMA
     Dosage: ROUTE:IV + PO, DOSAGE FORM: INFUSION + ORALLY; DATE OF LAST DOSE PRIOR TO SAE: 21 MAY 2009
     Route: 042

REACTIONS (2)
  - Febrile neutropenia [Recovered/Resolved]
  - Neutropenic sepsis [Recovered/Resolved]

NARRATIVE: CASE EVENT DATE: 20090420
